FAERS Safety Report 15809112 (Version 1)
Quarter: 2019Q1

REPORT INFORMATION
  Report Type: Spontaneous
  Country: ES (occurrence: ES)
  Receive Date: 20190110
  Receipt Date: 20190110
  Transmission Date: 20190417
  Serious: Yes (Hospitalization)
  Sender: FDA-Public Use
  Company Number: PHHY2019ES001073

PATIENT
  Age: 58 Year
  Sex: Female

DRUGS (2)
  1. ETANERCEPT [Suspect]
     Active Substance: ETANERCEPT
     Indication: RHEUMATOID ARTHRITIS
     Dosage: 25 MG, (EVERY 4 DAYS )
     Route: 058
  2. METHOTREXATE. [Concomitant]
     Active Substance: METHOTREXATE
     Indication: RHEUMATOID ARTHRITIS
     Dosage: 10 MG, QW
     Route: 048

REACTIONS (5)
  - Uveitis [Recovering/Resolving]
  - Cataract nuclear [Recovering/Resolving]
  - Iris adhesions [Recovering/Resolving]
  - Ocular hyperaemia [Recovering/Resolving]
  - Acid fast bacilli infection [Unknown]
